FAERS Safety Report 16954855 (Version 2)
Quarter: 2019Q4

REPORT INFORMATION
  Report Type: Spontaneous
  Country: NL (occurrence: NL)
  Receive Date: 20191024
  Receipt Date: 20191231
  Transmission Date: 20200122
  Serious: Yes (Other)
  Sender: FDA-Public Use
  Company Number: NL-AUROBINDO-AUR-APL-2019-068643

PATIENT
  Sex: Female
  Weight: 80 kg

DRUGS (3)
  1. QUETIAPINE FILM-COATED TABLETS 25MG [Suspect]
     Active Substance: QUETIAPINE
     Indication: ANXIETY
  2. QUETIAPINE FILM-COATED TABLETS 25MG [Suspect]
     Active Substance: QUETIAPINE
     Indication: DEPRESSION
     Dosage: 25 MILLIGRAM, TWO TIMES A DAY
     Route: 048
     Dates: start: 2013
  3. FLUOXETINE [Suspect]
     Active Substance: FLUOXETINE HYDROCHLORIDE
     Indication: DEPRESSION
     Dosage: 32 MILLIGRAM, ONCE A DAY
     Route: 048
     Dates: start: 2015

REACTIONS (3)
  - Umbilical cord abnormality [Unknown]
  - Foetal death [Unknown]
  - Maternal exposure during pregnancy [Unknown]
